FAERS Safety Report 9086746 (Version 1)
Quarter: 2013Q1

REPORT INFORMATION
  Report Type: Report from Study
  Country: US (occurrence: US)
  Receive Date: 20130130
  Receipt Date: 20130130
  Transmission Date: 20140127
  Serious: No
  Sender: FDA-Public Use
  Company Number: US-ABBOTT-12P-163-0988214-00

PATIENT
  Age: 44 Year
  Sex: Female

DRUGS (6)
  1. HUMIRA [Suspect]
     Indication: PSORIATIC ARTHROPATHY
  2. TRAMADOL [Concomitant]
     Indication: PRODUCT USED FOR UNKNOWN INDICATION
     Dosage: 37.5MG 2 TABLETS
  3. SULFASALAZINE [Concomitant]
     Indication: PRODUCT USED FOR UNKNOWN INDICATION
  4. WELLBUTRIN XL [Concomitant]
     Indication: PRODUCT USED FOR UNKNOWN INDICATION
  5. ZANAFLEX [Concomitant]
     Indication: PAIN
     Dosage: 4MG AT NIGHT AND 1MG DURING THE DAY
  6. XYZAL [Concomitant]
     Indication: HYPERSENSITIVITY

REACTIONS (16)
  - Injection site haemorrhage [Not Recovered/Not Resolved]
  - Sinusitis [Not Recovered/Not Resolved]
  - Pain [Not Recovered/Not Resolved]
  - Sinusitis [Recovered/Resolved]
  - Sneezing [Recovered/Resolved]
  - Oropharyngeal pain [Recovered/Resolved]
  - Headache [Recovered/Resolved]
  - Rhinitis [Recovered/Resolved]
  - Incorrect dose administered [Not Recovered/Not Resolved]
  - Injection site vesicles [Not Recovered/Not Resolved]
  - Feeling hot [Not Recovered/Not Resolved]
  - Injection site bruising [Not Recovered/Not Resolved]
  - Device malfunction [Unknown]
  - Mobility decreased [Not Recovered/Not Resolved]
  - Discomfort [Not Recovered/Not Resolved]
  - Injection site pain [Not Recovered/Not Resolved]
